FAERS Safety Report 8919146 (Version 1)
Quarter: 2012Q4

REPORT INFORMATION
  Report Type: 
  Country: JP (occurrence: JP)
  Receive Date: 20121121
  Receipt Date: 20121121
  Transmission Date: 20130627
  Serious: Yes (Hospitalization)
  Sender: FDA-Public Use
  Company Number: JP-ELI_LILLY_AND_COMPANY-JP201209007642

PATIENT
  Age: 75 Year
  Sex: Female

DRUGS (3)
  1. FORTEO [Suspect]
     Dosage: UNK UNK, each morning
     Route: 058
     Dates: start: 20120904, end: 201209
  2. FORTEO [Suspect]
     Dosage: UNK UNK, each evening
     Route: 058
     Dates: start: 201209, end: 201209
  3. LUVOX [Concomitant]
     Indication: DEPRESSION
     Dosage: UNK
     Route: 048

REACTIONS (3)
  - Lumbar vertebral fracture [Unknown]
  - Dizziness [Unknown]
  - Headache [Unknown]
